FAERS Safety Report 4709522-7 (Version None)
Quarter: 2005Q3

REPORT INFORMATION
  Report Type: 
  Country: None (occurrence: None)
  Receive Date: 20050707
  Receipt Date: 20050624
  Transmission Date: 20060218
  Serious: Yes (Hospitalization, Other)
  Sender: FDA-Public Use
  Company Number: 2005092939

PATIENT
  Sex: Male
  Weight: 90.7194 kg

DRUGS (4)
  1. VIAGRA [Suspect]
     Dosage: 50 MG AS NECESSARY ORAL
     Route: 048
     Dates: start: 20020101
  2. NORVASC [Concomitant]
  3. DIOVAN ^CIBA-GEIGY^ (VALSARTAN) [Concomitant]
  4. ZOCOR [Concomitant]

REACTIONS (3)
  - ERECTILE DYSFUNCTION [None]
  - INTENTIONAL MISUSE [None]
  - PROSTATE CANCER [None]
